FAERS Safety Report 7376852-2 (Version None)
Quarter: 2011Q1

REPORT INFORMATION
  Report Type: 
  Country: None (occurrence: None)
  Receive Date: 20110325
  Receipt Date: 20110317
  Transmission Date: 20110831
  Serious: Yes (Other)
  Sender: FDA-Public Use
  Company Number: US-AMGEN-USASP2011014803

PATIENT
  Age: 64 Year
  Sex: Female

DRUGS (1)
  1. ENBREL [Suspect]
     Indication: RHEUMATOID ARTHRITIS
     Dosage: 50 MG, QWK
     Dates: start: 20030101

REACTIONS (7)
  - GAIT DISTURBANCE [None]
  - MOBILITY DECREASED [None]
  - BALANCE DISORDER [None]
  - MULTIPLE SCLEROSIS [None]
  - FALL [None]
  - MUSCULOSKELETAL STIFFNESS [None]
  - RIB FRACTURE [None]
